FAERS Safety Report 5942093-6 (Version None)
Quarter: 2008Q4

REPORT INFORMATION
  Report Type: 
  Country: None (occurrence: None)
  Receive Date: 20081031
  Receipt Date: 20081022
  Transmission Date: 20090506
  Serious: No
  Sender: FDA-Public Use
  Company Number: 2008BI028441

PATIENT
  Sex: Male

DRUGS (3)
  1. AVONEX [Suspect]
     Indication: MULTIPLE SCLEROSIS
     Dosage: IM; 30 UG; QW; IM
     Route: 030
     Dates: start: 20040601
  2. CON MEDS [Concomitant]
  3. PREV MEDS [Concomitant]

REACTIONS (1)
  - DEATH [None]
